APPROVED DRUG PRODUCT: ADVIL ALLERGY SINUS
Active Ingredient: CHLORPHENIRAMINE MALEATE; IBUPROFEN; PSEUDOEPHEDRINE HYDROCHLORIDE
Strength: 2MG;200MG;30MG
Dosage Form/Route: TABLET;ORAL
Application: N021441 | Product #001
Applicant: HALEON US HOLDINGS LLC
Approved: Dec 19, 2002 | RLD: Yes | RS: Yes | Type: OTC

PATENTS:
Patent 7863287 | Expires: Feb 28, 2027